FAERS Safety Report 15773075 (Version 6)
Quarter: 2020Q1

REPORT INFORMATION
  Report Type: Report from Study
  Country: US (occurrence: US)
  Receive Date: 20181228
  Receipt Date: 20200302
  Transmission Date: 20200409
  Serious: Yes (Hospitalization)
  Sender: FDA-Public Use
  Company Number: US-ACTELION-A-US2018-184039

PATIENT
  Sex: Female
  Weight: 56.69 kg

DRUGS (5)
  1. VELETRI [Suspect]
     Active Substance: EPOPROSTENOL
     Dosage: 24 UNK
     Route: 042
  2. ADEMPAS [Concomitant]
     Active Substance: RIOCIGUAT
  3. OPSUMIT [Suspect]
     Active Substance: MACITENTAN
     Indication: PULMONARY ARTERIAL HYPERTENSION
     Dosage: 10 MG, QD
     Route: 048
  4. ELIQUIS [Concomitant]
     Active Substance: APIXABAN
  5. VELETRI [Suspect]
     Active Substance: EPOPROSTENOL
     Indication: PULMONARY ARTERIAL HYPERTENSION
     Dosage: 20 NG/KG, PER MIN
     Route: 042
     Dates: start: 20180517

REACTIONS (12)
  - Hypotension [Unknown]
  - Pulmonary arterial pressure increased [Unknown]
  - Feeling abnormal [Unknown]
  - Weight decreased [Unknown]
  - Anaemia [Unknown]
  - Nasopharyngitis [Unknown]
  - Diarrhoea [Unknown]
  - Malaise [Unknown]
  - Headache [Recovering/Resolving]
  - Platelet count decreased [Unknown]
  - Pain in jaw [Recovering/Resolving]
  - Nausea [Unknown]
